FAERS Safety Report 6151010-8 (Version None)
Quarter: 2009Q2

REPORT INFORMATION
  Report Type: 
  Country: None (occurrence: None)
  Receive Date: 20090410
  Receipt Date: 20090324
  Transmission Date: 20091009
  Serious: No
  Sender: FDA-Public Use
  Company Number: A0769999A

PATIENT
  Age: 69 Year
  Sex: Female

DRUGS (2)
  1. TYKERB [Suspect]
     Dosage: 5CAP PER DAY
     Route: 048
     Dates: start: 20090218
  2. GEMZAR [Concomitant]

REACTIONS (4)
  - FATIGUE [None]
  - NAIL DISORDER [None]
  - NAUSEA [None]
  - ONYCHOCLASIS [None]
